FAERS Safety Report 5317021-7 (Version None)
Quarter: 2007Q2

REPORT INFORMATION
  Report Type: 
  Country: None (occurrence: None)
  Receive Date: 20070504
  Receipt Date: 20070420
  Transmission Date: 20071010
  Serious: Yes (Life-Threatening, Other)
  Sender: FDA-Public Use
  Company Number: JP-ROCHE-483682

PATIENT
  Age: 15 Year
  Sex: Male
  Weight: 58 kg

DRUGS (7)
  1. TAMIFLU [Suspect]
     Route: 048
     Dates: start: 20070208, end: 20070208
  2. TAMIFLU [Suspect]
     Route: 048
     Dates: start: 20070209, end: 20070212
  3. TAMIFLU [Suspect]
     Route: 048
     Dates: start: 20070213, end: 20070213
  4. MUCOSTA [Concomitant]
     Route: 048
     Dates: start: 20070208, end: 20070213
  5. ZYRTEC [Concomitant]
     Route: 048
     Dates: start: 20070213, end: 20070214
  6. CALONAL [Concomitant]
     Dosage: DOSE: TAKEN AS NEEDED. SINGLE USE.
     Route: 048
     Dates: start: 20070208, end: 20070211
  7. NOLEPTAN [Concomitant]
     Route: 048
     Dates: start: 20070208, end: 20070213

REACTIONS (2)
  - ABNORMAL BEHAVIOUR [None]
  - LETHARGY [None]
